FAERS Safety Report 21042424 (Version 1)
Quarter: 2022Q3

REPORT INFORMATION
  Report Type: Spontaneous
  Country: US (occurrence: None)
  Receive Date: 20220701
  Receipt Date: 20220701
  Transmission Date: 20221027
  Serious: Yes (Disabling)
  Sender: FDA-Public Use
  Company Number: None

PATIENT
  Age: 65 Year
  Sex: Male
  Weight: 90 kg

DRUGS (8)
  1. PAXLOVID [Suspect]
     Active Substance: NIRMATRELVIR\RITONAVIR
     Indication: COVID-19
     Dosage: FREQUENCY : TWICE A DAY;?
     Route: 048
     Dates: start: 20220602, end: 20220607
  2. DEVICE [Concomitant]
     Active Substance: DEVICE
  3. amlodipine 5 mgM /DEOKUB [Concomitant]
  4. PureGenomics B-Complex [Concomitant]
  5. saw palmetto 580 mg [Concomitant]
  6. Omega-3 690 mg [Concomitant]
  7. Cal-Citrate+D-3 [Concomitant]
  8. MAGNESIUM [Concomitant]
     Active Substance: MAGNESIUM

REACTIONS (2)
  - COVID-19 [None]
  - SARS-CoV-2 test positive [None]

NARRATIVE: CASE EVENT DATE: 20220609
